FAERS Safety Report 6701110-6 (Version None)
Quarter: 2010Q2

REPORT INFORMATION
  Report Type: 
  Country: None (occurrence: None)
  Receive Date: 20100428
  Receipt Date: 20100428
  Transmission Date: 20101027
  Serious: Yes (Other)
  Sender: FDA-Public Use
  Company Number: None

PATIENT
  Age: 22 Year
  Sex: Female
  Weight: 47.6277 kg

DRUGS (2)
  1. VENLAFAXINE [Suspect]
     Indication: ANXIETY
     Dosage: 75 MG 1X DAILY PO ; 37.5 MG 1X DAILY PO
     Route: 048
     Dates: start: 20100202, end: 20100416
  2. VENLAFAXINE [Suspect]
     Indication: DEPRESSION
     Dosage: 75 MG 1X DAILY PO ; 37.5 MG 1X DAILY PO
     Route: 048
     Dates: start: 20100202, end: 20100416

REACTIONS (32)
  - ACTIVITIES OF DAILY LIVING IMPAIRED [None]
  - ANGER [None]
  - ANXIETY [None]
  - COORDINATION ABNORMAL [None]
  - CRYING [None]
  - DIARRHOEA [None]
  - DRUG DEPENDENCE [None]
  - DRUG DOSE OMISSION [None]
  - DRUG WITHDRAWAL SYNDROME [None]
  - DYSPEPSIA [None]
  - FEAR [None]
  - FEELING ABNORMAL [None]
  - FRUSTRATION [None]
  - HALLUCINATIONS, MIXED [None]
  - HYPERHIDROSIS [None]
  - INDIFFERENCE [None]
  - INTENTIONAL SELF-INJURY [None]
  - IRRITABILITY [None]
  - MOOD SWINGS [None]
  - NAUSEA [None]
  - NECK PAIN [None]
  - PAIN [None]
  - PANIC ATTACK [None]
  - PARAESTHESIA [None]
  - SCREAMING [None]
  - SEXUAL DYSFUNCTION [None]
  - SLEEP DISORDER [None]
  - SLEEP TERROR [None]
  - SOMNOLENCE [None]
  - SUICIDAL IDEATION [None]
  - VERTIGO [None]
  - VISION BLURRED [None]
